FAERS Safety Report 22297997 (Version 9)
Quarter: 2024Q4

REPORT INFORMATION
  Report Type: Spontaneous
  Country: DE (occurrence: DE)
  Receive Date: 20230509
  Receipt Date: 20241007
  Transmission Date: 20250114
  Serious: Yes (Life-Threatening, Hospitalization, Disabling, Other)
  Sender: NOVARTIS
  Company Number: None

PATIENT
  Age: 51 Year
  Sex: Female
  Weight: 62 kg

DRUGS (9)
  1. FINGOLIMOD [Suspect]
     Active Substance: FINGOLIMOD
     Indication: Multiple sclerosis
     Dosage: 0.5 MG, QD
     Route: 065
     Dates: start: 201907, end: 20230419
  2. TERIFLUNOMIDE [Suspect]
     Active Substance: TERIFLUNOMIDE
     Indication: Product used for unknown indication
     Dosage: 14 MG, QD
     Route: 065
     Dates: start: 201503, end: 201905
  3. CHOLECALCIFEROL [Concomitant]
     Active Substance: CHOLECALCIFEROL
     Indication: Product used for unknown indication
     Dosage: UNK
     Route: 065
  4. DULCOLAX [Concomitant]
     Indication: Constipation
     Dosage: UNK
     Route: 065
  5. MIDAZOLAM [Concomitant]
     Active Substance: MIDAZOLAM
     Indication: Product used for unknown indication
     Dosage: UNK
     Route: 042
     Dates: start: 20230424
  6. PROPOFOL [Concomitant]
     Active Substance: PROPOFOL
     Indication: Product used for unknown indication
     Dosage: UNK
     Route: 042
     Dates: start: 20230424
  7. MAGNESIUM SULFATE\POTASSIUM SULFATE\SODIUM SULFATE [Concomitant]
     Active Substance: MAGNESIUM SULFATE\POTASSIUM SULFATE\SODIUM SULFATE
     Indication: Constipation
     Dosage: UNK
     Route: 065
  8. AMPHO-MORONAL [Concomitant]
     Active Substance: AMPHOTERICIN B
     Indication: Product used for unknown indication
     Dosage: 1 ML, QID (1-1-1-1) (FORMULATION: SUSPENSION)
     Route: 065
     Dates: start: 2023
  9. AMPHO-MORONAL [Concomitant]
     Active Substance: AMPHOTERICIN B
     Dosage: 4 DF, QD (1-1-1-1)
     Route: 065
     Dates: start: 2023

REACTIONS (20)
  - Non-small cell lung cancer metastatic [Unknown]
  - Non-small cell lung cancer [Not Recovered/Not Resolved]
  - Back pain [Not Recovered/Not Resolved]
  - Lymphopenia [Unknown]
  - Metastases to bone [Unknown]
  - Metastasis [Unknown]
  - Metastases to lymph nodes [Unknown]
  - Adrenal gland cancer metastatic [Unknown]
  - Adenocarcinoma [Unknown]
  - Bronchial carcinoma [Unknown]
  - Paresis [Unknown]
  - Blood alkaline phosphatase increased [Unknown]
  - Dehydration [Unknown]
  - Eyelid oedema [Unknown]
  - Procedural pneumothorax [Unknown]
  - Hypoaesthesia [Unknown]
  - Pulmonary mass [Unknown]
  - Alanine aminotransferase increased [Unknown]
  - Gamma-glutamyltransferase increased [Unknown]
  - Aspartate aminotransferase increased [Unknown]

NARRATIVE: CASE EVENT DATE: 20230301
